FAERS Safety Report 16822521 (Version 2)
Quarter: 2019Q4

REPORT INFORMATION
  Report Type: Spontaneous
  Country: US (occurrence: US)
  Receive Date: 20190918
  Receipt Date: 20191029
  Transmission Date: 20200122
  Serious: Yes (Death, Other)
  Sender: FDA-Public Use
  Company Number: US-PFIZER INC-2019399858

PATIENT
  Age: 80 Year
  Sex: Female
  Weight: 81.6 kg

DRUGS (2)
  1. XALKORI [Suspect]
     Active Substance: CRIZOTINIB
     Indication: LUNG CARCINOMA CELL TYPE UNSPECIFIED STAGE IV
     Dosage: 250 MG, UNK
  2. XALKORI [Suspect]
     Active Substance: CRIZOTINIB
     Dosage: 10 MG, 2X/DAY
     Dates: start: 20190409, end: 201906

REACTIONS (2)
  - Blood glucose increased [Unknown]
  - Death [Fatal]

NARRATIVE: CASE EVENT DATE: 201904
